FAERS Safety Report 23830789 (Version 1)
Quarter: 2024Q2

REPORT INFORMATION
  Report Type: Spontaneous
  Country: US (occurrence: US)
  Receive Date: 20240508
  Receipt Date: 20240508
  Transmission Date: 20240716
  Serious: No
  Sender: FDA-Public Use
  Company Number: US-BAYER-2024A066075

PATIENT
  Age: 28 Year
  Sex: Female

DRUGS (1)
  1. ALEVE [Suspect]
     Active Substance: NAPROXEN SODIUM
     Indication: Pain
     Dosage: FOUR TABLETS, TWO TABLETS AT 4AM AND TWO TABLETS AT 9AM
     Route: 048

REACTIONS (1)
  - Extra dose administered [Unknown]
